FAERS Safety Report 6774931-1 (Version None)
Quarter: 2010Q2

REPORT INFORMATION
  Report Type: 
  Country: None (occurrence: None)
  Receive Date: 20100617
  Receipt Date: 20100609
  Transmission Date: 20101027
  Serious: Yes (Hospitalization)
  Sender: FDA-Public Use
  Company Number: FR-AMGEN-QUU417144

PATIENT
  Sex: Male

DRUGS (15)
  1. CINACALCET HYDROCHLORIDE [Suspect]
     Indication: DRUG USE FOR UNKNOWN INDICATION
     Route: 048
     Dates: end: 20091217
  2. TACROLIMUS [Concomitant]
     Route: 048
     Dates: end: 20091217
  3. ACETAMINOPHEN [Concomitant]
     Route: 048
     Dates: end: 20091217
  4. LANTUS [Concomitant]
  5. NOVORAPID [Concomitant]
  6. HUMALOG [Concomitant]
  7. CALCIPARINE [Concomitant]
  8. TOPALGIC [Concomitant]
  9. ORBENIN CAP [Concomitant]
  10. ATARAX [Concomitant]
  11. FOSINOPRIL SODIUM [Concomitant]
  12. AMLOR [Concomitant]
  13. HYDROCORTISONE [Concomitant]
  14. TAHOR [Concomitant]
  15. UNSPECIFIED MEDICATION [Concomitant]

REACTIONS (1)
  - HEPATITIS ACUTE [None]
